FAERS Safety Report 8364815-X (Version None)
Quarter: 2012Q2

REPORT INFORMATION
  Report Type: 
  Country: None (occurrence: None)
  Receive Date: 20120516
  Receipt Date: 20120509
  Transmission Date: 20120825
  Serious: Yes (Life-Threatening)
  Sender: FDA-Public Use
  Company Number: FR-PURDUE-GBR-2012-0010595

PATIENT
  Sex: Female

DRUGS (6)
  1. VITAMIN B12                        /00056201/ [Concomitant]
     Dosage: 1 DF, EVERY 10 DAYS
  2. OXYCODONE HYDROCHLORIDE [Suspect]
     Indication: PRODUCT USED FOR UNKNOWN INDICATION
     Dosage: 30 MG, SINGLE
     Dates: start: 20120415, end: 20120415
  3. RISPERIDONE [Concomitant]
     Dosage: 0.25 MG, AM
     Route: 048
  4. ACETAMINOPHEN [Concomitant]
     Dosage: 1000 MG, TID
     Route: 048
  5. RISPERIDONE [Concomitant]
     Dosage: 0.50 MG, NOCTE
     Route: 048
  6. OXYCONTIN [Suspect]
     Indication: PRODUCT USED FOR UNKNOWN INDICATION
     Dosage: 1 DF, SINGLE
     Route: 048
     Dates: start: 20120415, end: 20120415

REACTIONS (4)
  - RESPIRATORY DISTRESS [None]
  - HYPOTONIA [None]
  - MIOSIS [None]
  - WRONG DRUG ADMINISTERED [None]
